FAERS Safety Report 25468246 (Version 1)
Quarter: 2025Q2

REPORT INFORMATION
  Report Type: Spontaneous
  Country: US (occurrence: None)
  Receive Date: 20250620
  Receipt Date: 20250620
  Transmission Date: 20250716
  Serious: Yes (Death, Hospitalization)
  Sender: FDA-CTU
  Company Number: None

PATIENT
  Age: 70 Year
  Sex: Male

DRUGS (1)
  1. POMALYST [Suspect]
     Active Substance: POMALIDOMIDE
     Indication: Plasma cell myeloma
     Dosage: FREQUENCY : DAILY;?
     Route: 048
     Dates: start: 20250210, end: 20250429

REACTIONS (4)
  - Acute kidney injury [None]
  - Cerebellar infarction [None]
  - Hypercalcaemia [None]
  - Haemodialysis [None]

NARRATIVE: CASE EVENT DATE: 20250530
